FAERS Safety Report 8787701 (Version 1)
Quarter: 2012Q4

REPORT INFORMATION
  Report Type: Report from Study
  Country: US (occurrence: US)
  Receive Date: 20120914
  Receipt Date: 20120914
  Transmission Date: 20130627
  Serious: No
  Sender: FDA-Public Use
  Company Number: US-VERTEX PHARMACEUTICAL INC.-AE-2012-008593

PATIENT
  Age: 63 None
  Sex: Female
  Weight: 65.8 kg

DRUGS (6)
  1. INCIVEK [Suspect]
     Indication: HEPATITIS C
     Route: 048
     Dates: start: 20120518
  2. RIBASPHERE [Concomitant]
     Indication: HEPATITIS C
     Dates: start: 20120518
  3. PEGASYS [Concomitant]
     Indication: HEPATITIS C
     Route: 058
     Dates: start: 20120518
  4. SYNTHROID [Concomitant]
     Route: 048
  5. ALENDRONATE SODIUM [Concomitant]
     Route: 048
  6. LEXAPRO [Concomitant]
     Route: 048

REACTIONS (8)
  - Restless legs syndrome [Unknown]
  - Decreased appetite [Unknown]
  - Rash [Unknown]
  - Diarrhoea [Unknown]
  - Haemorrhoids [Unknown]
  - Vomiting [Unknown]
  - Dysgeusia [Unknown]
  - Nausea [Not Recovered/Not Resolved]
